FAERS Safety Report 9706558 (Version 1)
Quarter: 2013Q4

REPORT INFORMATION
  Report Type: Spontaneous
  Country: NL (occurrence: NL)
  Receive Date: 20131125
  Receipt Date: 20131125
  Transmission Date: 20140711
  Serious: Yes (Other)
  Sender: FDA-Public Use
  Company Number: NL-009507513-1311NLD009405

PATIENT
  Age: 32 Year
  Sex: Female

DRUGS (2)
  1. NUVARING [Suspect]
     Indication: CONTRACEPTION
     Dosage: 1 TIMES PER 1 MONTHS 1 DF
     Route: 067
     Dates: start: 20130720, end: 2013
  2. CHAMPIX [Interacting]
     Indication: SMOKING CESSATION THERAPY
     Dosage: 2 TIMES PER 1 DAYS 1 MG
     Dates: start: 20130703

REACTIONS (2)
  - Pregnancy with contraceptive device [Not Recovered/Not Resolved]
  - Drug interaction [Not Recovered/Not Resolved]
